FAERS Safety Report 6406928-5 (Version None)
Quarter: 2009Q4

REPORT INFORMATION
  Report Type: 
  Country: None (occurrence: None)
  Receive Date: 20091014
  Receipt Date: 20091008
  Transmission Date: 20100525
  Serious: Yes (Other)
  Sender: FDA-Public Use
  Company Number: 2009SP029394

PATIENT
  Age: 8 Year
  Sex: Male

DRUGS (1)
  1. DR. SCHOLL'S CLEAR AWAY LIQUID WART REMOVER (SALICYLIC ACID) [Suspect]
     Indication: SKIN PAPILLOMA

REACTIONS (2)
  - ACCIDENTAL EXPOSURE [None]
  - LOSS OF CONSCIOUSNESS [None]
